FAERS Safety Report 23947801 (Version 1)
Quarter: 2024Q2

REPORT INFORMATION
  Report Type: Spontaneous
  Country: US (occurrence: US)
  Receive Date: 20240606
  Receipt Date: 20240606
  Transmission Date: 20240716
  Serious: No
  Sender: FDA-Public Use
  Company Number: US-JNJFOC-20240563431

PATIENT
  Sex: Male

DRUGS (1)
  1. VISINE A [Suspect]
     Active Substance: NAPHAZOLINE HYDROCHLORIDE\PHENIRAMINE MALEATE
     Indication: Accidental exposure to product
     Dosage: 5 DROPS
     Route: 001

REACTIONS (3)
  - Arthralgia [Unknown]
  - Back pain [Unknown]
  - Accidental exposure to product [Unknown]
